FAERS Safety Report 8146894-8 (Version None)
Quarter: 2012Q1

REPORT INFORMATION
  Report Type: 
  Country: None (occurrence: None)
  Receive Date: 20120217
  Receipt Date: 20120210
  Transmission Date: 20120608
  Serious: Yes (Hospitalization)
  Sender: FDA-Public Use
  Company Number: GB-ABBOTT-12P-167-0903525-00

PATIENT
  Sex: Male
  Weight: 89 kg

DRUGS (5)
  1. HUMIRA [Suspect]
     Indication: RHEUMATOID ARTHRITIS
     Route: 058
     Dates: start: 20080214
  2. UNSPECIFIED ANTIBIOTICS [Concomitant]
     Indication: PRODUCT USED FOR UNKNOWN INDICATION
     Route: 048
  3. METHOTREXATE [Concomitant]
     Indication: PRODUCT USED FOR UNKNOWN INDICATION
     Dates: start: 20080215
  4. HUMIRA [Suspect]
  5. METHOTREXATE [Concomitant]

REACTIONS (4)
  - LIVER FUNCTION TEST ABNORMAL [None]
  - BILE DUCT STONE [None]
  - CHOLELITHIASIS [None]
  - JAUNDICE [None]
